FAERS Safety Report 16827732 (Version 1)
Quarter: 2019Q4

REPORT INFORMATION
  Report Type: Spontaneous
  Country: US (occurrence: US)
  Receive Date: 20190919
  Receipt Date: 20190919
  Transmission Date: 20200122
  Serious: Yes (Life-Threatening)
  Sender: FDA-Public Use
  Company Number: None

PATIENT
  Age: 42 Year
  Sex: Female
  Weight: 120 kg

DRUGS (1)
  1. INFLECTRA [Suspect]
     Active Substance: INFLIXIMAB-DYYB
     Indication: CROHN^S DISEASE
     Dosage: ?          OTHER FREQUENCY:ONCE;?
     Route: 042
     Dates: start: 20190918, end: 20190918

REACTIONS (7)
  - Respiratory distress [None]
  - Urticaria [None]
  - Nausea [None]
  - Vomiting [None]
  - Eye swelling [None]
  - Mouth swelling [None]
  - Arthralgia [None]

NARRATIVE: CASE EVENT DATE: 20190918
